FAERS Safety Report 7050566-0 (Version None)
Quarter: 2010Q4

REPORT INFORMATION
  Report Type: 
  Country: None (occurrence: None)
  Receive Date: 20101018
  Receipt Date: 20101004
  Transmission Date: 20110411
  Serious: Yes (Disabling, Other)
  Sender: FDA-Public Use
  Company Number: US-BAUSCH-2010BL005635

PATIENT
  Age: 68 Year
  Sex: Male

DRUGS (12)
  1. BESIVANCE [Suspect]
     Indication: PREOPERATIVE CARE
     Route: 047
     Dates: start: 20100627, end: 20100713
  2. BESIVANCE [Suspect]
     Indication: POSTOPERATIVE CARE
     Route: 047
     Dates: start: 20100627, end: 20100713
  3. BESIVANCE [Suspect]
     Indication: OFF LABEL USE
     Route: 047
     Dates: start: 20100627, end: 20100713
  4. DICLOFENAC SODIUM [Concomitant]
     Indication: CATARACT OPERATION
     Route: 047
     Dates: start: 20100627
  5. PRED FORTE [Concomitant]
     Indication: CATARACT OPERATION
     Route: 047
     Dates: start: 20100627
  6. KETOROLAC TROMETHAMINE [Concomitant]
     Indication: CATARACT OPERATION
     Dates: start: 20100627
  7. COMBIGAN [Concomitant]
     Indication: INTRAOCULAR PRESSURE INCREASED
     Route: 047
     Dates: start: 20100713
  8. TRAVATAN [Concomitant]
     Indication: INTRAOCULAR PRESSURE INCREASED
     Route: 047
     Dates: start: 20100715, end: 20100715
  9. ATROPINE [Concomitant]
     Indication: INTRAOCULAR PRESSURE INCREASED
     Route: 047
     Dates: start: 20100715, end: 20100715
  10. TRUSOPT /GFR/ [Concomitant]
     Indication: INTRAOCULAR PRESSURE INCREASED
     Route: 047
     Dates: start: 20100715
  11. DIAMOX SRC [Concomitant]
     Indication: INTRAOCULAR PRESSURE INCREASED
     Route: 048
     Dates: start: 20100715
  12. VICODIN [Concomitant]
     Indication: EYE PAIN
     Dates: start: 20100715

REACTIONS (2)
  - ENDOPHTHALMITIS [None]
  - INTRAOCULAR PRESSURE INCREASED [None]
